FAERS Safety Report 15771975 (Version 2)
Quarter: 2019Q1

REPORT INFORMATION
  Report Type: Spontaneous
  Country: US (occurrence: US)
  Receive Date: 20181228
  Receipt Date: 20190219
  Transmission Date: 20190417
  Serious: No
  Sender: FDA-Public Use
  Company Number: US-SA-2018SA393864

PATIENT
  Age: 55 Year
  Sex: Female

DRUGS (6)
  1. AZELASTINE. [Concomitant]
     Active Substance: AZELASTINE HYDROCHLORIDE
  2. DIAZEPAM. [Concomitant]
     Active Substance: DIAZEPAM
  3. ZOLPIDEM [Concomitant]
     Active Substance: ZOLPIDEM\ZOLPIDEM TARTRATE
  4. DUPIXENT [Suspect]
     Active Substance: DUPILUMAB
     Indication: DERMATITIS ATOPIC
     Dosage: 300 MG, QOW
     Route: 058
     Dates: start: 201811
  5. FLUTICASONE. [Concomitant]
     Active Substance: FLUTICASONE
  6. LORATADINE. [Concomitant]
     Active Substance: LORATADINE

REACTIONS (6)
  - Pain in extremity [Unknown]
  - Pain [Unknown]
  - Arthralgia [Unknown]
  - Pruritus [Unknown]
  - Muscle spasms [Unknown]
  - Discomfort [Unknown]

NARRATIVE: CASE EVENT DATE: 201901
